FAERS Safety Report 7985119-0 (Version None)
Quarter: 2011Q4

REPORT INFORMATION
  Report Type: 
  Country: None (occurrence: None)
  Receive Date: 20111213
  Receipt Date: 20111205
  Transmission Date: 20120403
  Serious: Yes (Death, Hospitalization)
  Sender: FDA-Public Use
  Company Number: DSA_48152_2011

PATIENT
  Age: 49 Year
  Sex: Male

DRUGS (6)
  1. DILTIAZEM [Suspect]
     Indication: PRODUCT USED FOR UNKNOWN INDICATION
     Dosage: (DF)
  2. ENALAPRIL MALEATE [Suspect]
     Indication: PRODUCT USED FOR UNKNOWN INDICATION
     Dosage: (DF)
  3. KETOPROFEN [Suspect]
     Indication: PRODUCT USED FOR UNKNOWN INDICATION
     Dosage: (DF)
  4. INDAPAMIDE [Suspect]
     Indication: PRODUCT USED FOR UNKNOWN INDICATION
     Dosage: (DF)
  5. COLCHICUM JTL LIQ [Suspect]
     Indication: PRODUCT USED FOR UNKNOWN INDICATION
     Dosage: (0.5 MG, 80 - 90 TABLETS, ONE TIME ORAL)
     Route: 048
  6. DICLOFENAC SODIUM [Suspect]
     Indication: PRODUCT USED FOR UNKNOWN INDICATION
     Dosage: (DF)

REACTIONS (18)
  - VOMITING [None]
  - TOXICITY TO VARIOUS AGENTS [None]
  - SUICIDE ATTEMPT [None]
  - ARTERIOSCLEROSIS CORONARY ARTERY [None]
  - ABDOMINAL TENDERNESS [None]
  - ACUTE RESPIRATORY FAILURE [None]
  - PANCREATIC ATROPHY [None]
  - CIRCULATORY COLLAPSE [None]
  - PLEURAL HAEMORRHAGE [None]
  - NAUSEA [None]
  - PULMONARY OEDEMA [None]
  - HEPATIC STEATOSIS [None]
  - DIARRHOEA [None]
  - GENERAL PHYSICAL HEALTH DETERIORATION [None]
  - DISSEMINATED INTRAVASCULAR COAGULATION [None]
  - MULTI-ORGAN FAILURE [None]
  - CARDIAC ARREST [None]
  - ATELECTASIS [None]
